FAERS Safety Report 6609063-6 (Version None)
Quarter: 2010Q1

REPORT INFORMATION
  Report Type: 
  Country: None (occurrence: None)
  Receive Date: 20100224
  Receipt Date: 20100224
  Transmission Date: 20100710
  Serious: Yes (Life-Threatening, Hospitalization)
  Sender: FDA-Public Use
  Company Number: None

PATIENT
  Age: 60 Year
  Sex: Male
  Weight: 74.8435 kg

DRUGS (1)
  1. IBUPROFEN [Suspect]
     Indication: SCIATICA
     Dosage: 1 TABLET EVERY 6 HOURS PO
     Route: 048
     Dates: start: 20090517, end: 20090531

REACTIONS (4)
  - IMPAIRED WORK ABILITY [None]
  - PEPTIC ULCER HAEMORRHAGE [None]
  - SYNCOPE [None]
  - TERMINAL STATE [None]
